FAERS Safety Report 4959162-X (Version None)
Quarter: 2006Q1

REPORT INFORMATION
  Report Type: 
  Country: None (occurrence: None)
  Receive Date: 20060330
  Receipt Date: 20060330
  Transmission Date: 20060701
  Serious: Yes (Hospitalization)
  Sender: FDA-Public Use
  Company Number: None

PATIENT
  Age: 77 Year
  Sex: Male
  Weight: 97 kg

DRUGS (6)
  1. WARFARIN SODIUM [Suspect]
     Indication: ATRIAL FIBRILLATION
     Dosage: 5 MG QD PO
     Route: 048
     Dates: start: 20041104, end: 20041226
  2. WARFARIN SODIUM [Suspect]
     Indication: CEREBROVASCULAR ACCIDENT
     Dosage: 5 MG QD PO
     Route: 048
     Dates: start: 20041104, end: 20041226
  3. TYLENOL (CAPLET) [Concomitant]
  4. METHOCARBAMOL [Concomitant]
  5. LACTULOSE [Concomitant]
  6. MYLANTA [Concomitant]

REACTIONS (5)
  - APHASIA [None]
  - BRADYCARDIA [None]
  - CONTUSION [None]
  - HAEMATURIA [None]
  - INTERNATIONAL NORMALISED RATIO INCREASED [None]
